FAERS Safety Report 13642263 (Version 1)
Quarter: 2017Q2

REPORT INFORMATION
  Report Type: Not Available
  Country: NZ (occurrence: NZ)
  Receive Date: 20170612
  Receipt Date: 20170612
  Transmission Date: 20170830
  Serious: Yes (Other)
  Sender: FDA-Public Use
  Company Number: NZ-ANIPHARMA-2017-NZ-000005

PATIENT
  Age: 83 Year
  Sex: Female

DRUGS (1)
  1. OXYCODONE (NON-SPECIFIC) [Suspect]
     Active Substance: OXYCODONE
     Dosage: 20MG DAILY

REACTIONS (1)
  - Biliary dilatation [Unknown]
